FAERS Safety Report 6998728-2 (Version None)
Quarter: 2010Q3

REPORT INFORMATION
  Report Type: 
  Country: None (occurrence: None)
  Receive Date: 20100920
  Receipt Date: 20100125
  Transmission Date: 20110219
  Serious: Yes (Hospitalization)
  Sender: FDA-Public Use
  Company Number: US-ASTRAZENECA-2009SE07099

PATIENT
  Age: 87 Year
  Sex: Male
  Weight: 74.8 kg

DRUGS (4)
  1. SEROQUEL [Suspect]
     Indication: HALLUCINATION
     Dosage: 25 MG IN THE MORNING AND 50 MG AT NIGHT
     Route: 048
     Dates: start: 20080101
  2. RISPERDAL [Concomitant]
  3. TRAZODONE HCL [Concomitant]
  4. XANAX [Concomitant]

REACTIONS (4)
  - AGITATION [None]
  - DYSPHAGIA [None]
  - PNEUMONIA [None]
  - PYREXIA [None]
